FAERS Safety Report 4999437-1 (Version None)
Quarter: 2006Q2

REPORT INFORMATION
  Report Type: 
  Country: None (occurrence: None)
  Receive Date: 20060511
  Receipt Date: 20060502
  Transmission Date: 20061013
  Serious: Yes (Hospitalization)
  Sender: FDA-Public Use
  Company Number: PHRM2006FR01494

PATIENT
  Age: 67 Year
  Sex: Male

DRUGS (6)
  1. GLUCOPHAGE [Concomitant]
     Indication: DIABETES MELLITUS NON-INSULIN-DEPENDENT
     Route: 048
  2. TAREG [Suspect]
     Indication: HYPERTENSION
     Dosage: 160 MG, QD
     Route: 048
     Dates: end: 20051118
  3. ALDACTONE [Suspect]
     Indication: HYPERTENSION
     Dosage: 75 MG, QD
     Route: 048
     Dates: end: 20051118
  4. LASILIX [Suspect]
     Indication: HYPERTENSION
     Dosage: 120 MG, QD
     Route: 048
     Dates: end: 20051118
  5. TRIATEC [Suspect]
     Indication: HYPERTENSION
     Dosage: 5 MG, QD
     Route: 048
     Dates: end: 20051118
  6. NOVONORM [Concomitant]
     Indication: DIABETES MELLITUS NON-INSULIN-DEPENDENT
     Route: 048

REACTIONS (7)
  - BLOOD CREATININE INCREASED [None]
  - BLOOD UREA INCREASED [None]
  - CARDIAC FAILURE [None]
  - CREATININE RENAL CLEARANCE DECREASED [None]
  - GENERALISED OEDEMA [None]
  - HYPERKALAEMIA [None]
  - RENAL FAILURE ACUTE [None]
